FAERS Safety Report 5399575-8 (Version None)
Quarter: 2007Q3

REPORT INFORMATION
  Report Type: 
  Country: None (occurrence: None)
  Receive Date: 20070727
  Receipt Date: 20070718
  Transmission Date: 20080115
  Serious: Yes (Hospitalization)
  Sender: FDA-Public Use
  Company Number: FI-ABBOTT-07P-055-0373640-00

PATIENT
  Sex: Female
  Weight: 65.1 kg

DRUGS (18)
  1. HUMIRA [Suspect]
     Indication: ANKYLOSING SPONDYLITIS
     Route: 058
     Dates: start: 20060913, end: 20070425
  2. IBUPROFEN [Concomitant]
     Indication: DRUG USE FOR UNKNOWN INDICATION
  3. VOLTAREN [Concomitant]
     Indication: PROPHYLAXIS
  4. VOLTAREN [Concomitant]
     Indication: TENDERNESS
  5. VOLTAREN [Concomitant]
     Indication: MUSCULOSKELETAL STIFFNESS
  6. BECLOMETHASONE DIPROPIONATE [Concomitant]
     Indication: DRUG USE FOR UNKNOWN INDICATION
  7. XYLOMETAZOLINE HYDROCHLORIDE [Concomitant]
     Indication: DRUG USE FOR UNKNOWN INDICATION
  8. PREDNISOLONE [Concomitant]
     Indication: DRUG USE FOR UNKNOWN INDICATION
  9. PREDNISOLONE [Concomitant]
  10. PREDNISOLONE [Concomitant]
  11. PREDNISOLONE [Concomitant]
  12. PREDNISOLONE [Concomitant]
  13. RETINOL [Concomitant]
     Indication: DRUG USE FOR UNKNOWN INDICATION
     Route: 045
  14. DICLOFENAC SODIUM [Concomitant]
     Indication: DRUG USE FOR UNKNOWN INDICATION
  15. DICLOFENAC SODIUM [Concomitant]
  16. OMEPRAZOLE [Concomitant]
     Indication: DRUG USE FOR UNKNOWN INDICATION
  17. DITRIM [Concomitant]
     Indication: DRUG USE FOR UNKNOWN INDICATION
  18. CYCLOPHOSPHAMIDE [Concomitant]
     Indication: DRUG USE FOR UNKNOWN INDICATION
     Dates: start: 20070608

REACTIONS (17)
  - CHEST X-RAY ABNORMAL [None]
  - EAR PAIN [None]
  - FACIAL PAIN [None]
  - LYMPH NODE PAIN [None]
  - LYMPHADENOPATHY [None]
  - MUSCLE DISORDER [None]
  - MUSCULOSKELETAL STIFFNESS [None]
  - NASAL CONGESTION [None]
  - NASAL MUCOSAL DISORDER [None]
  - ODYNOPHAGIA [None]
  - PERIPHERAL COLDNESS [None]
  - PHARYNGEAL ERYTHEMA [None]
  - POLYMENORRHOEA [None]
  - RESPIRATORY DISORDER [None]
  - SKIN DISCOLOURATION [None]
  - VOMITING [None]
  - WEGENER'S GRANULOMATOSIS [None]
